FAERS Safety Report 4582257-X (Version None)
Quarter: 2005Q1

REPORT INFORMATION
  Report Type: 
  Country: None (occurrence: None)
  Receive Date: 20050127
  Receipt Date: 20040908
  Transmission Date: 20050727
  Serious: No
  Sender: FDA-Public Use
  Company Number: USA040977571

PATIENT
  Age: 13 Year
  Sex: Male
  Weight: 58 kg

DRUGS (1)
  1. STRATTERA [Suspect]
     Indication: IMPULSE-CONTROL DISORDER
     Dosage: 80 MG
     Dates: start: 20031101

REACTIONS (2)
  - GYNAECOMASTIA [None]
  - WEIGHT INCREASED [None]
